FAERS Safety Report 5501523-4 (Version None)
Quarter: 2007Q4

REPORT INFORMATION
  Report Type: 
  Country: None (occurrence: None)
  Receive Date: 20071030
  Receipt Date: 20071024
  Transmission Date: 20080405
  Serious: Yes (Other)
  Sender: FDA-Public Use
  Company Number: PHEH2006US10897

PATIENT
  Age: 66 Year
  Sex: Male
  Weight: 97.959 kg

DRUGS (15)
  1. ZOMETA [Suspect]
     Indication: METASTASES TO BONE
     Dosage: UNK, QMO
     Dates: start: 20050101, end: 20060101
  2. CORTICOSTEROID NOS [Concomitant]
     Route: 008
     Dates: start: 20060201
  3. LASIX [Concomitant]
  4. CELEBREX [Concomitant]
  5. ALLOPURINOL [Concomitant]
     Dosage: 300 MG, QD
     Route: 048
  6. SPIRIVA [Concomitant]
  7. PROTONIX [Concomitant]
     Dosage: 40 MG, QD
  8. MUCINEX [Concomitant]
     Dosage: 200-600 MG PRN
  9. AMBIEN [Concomitant]
     Indication: SLEEP DISORDER
     Route: 048
  10. LUNESTA [Concomitant]
  11. PERCOCET [Concomitant]
  12. FOLIC ACID [Concomitant]
  13. ASPIRIN [Concomitant]
  14. ELIGARD [Concomitant]
  15. ACCUNEB [Concomitant]

REACTIONS (17)
  - ANXIETY [None]
  - BACK PAIN [None]
  - BONE DENSITY DECREASED [None]
  - CYST [None]
  - INJURY [None]
  - JAW DISORDER [None]
  - JOINT EFFUSION [None]
  - JOINT INJURY [None]
  - METASTASES TO BONE [None]
  - MUSCULAR WEAKNESS [None]
  - OSTEONECROSIS [None]
  - PAIN [None]
  - RADICULITIS LUMBOSACRAL [None]
  - SHOULDER OPERATION [None]
  - SPINAL COLUMN STENOSIS [None]
  - SPINAL OSTEOARTHRITIS [None]
  - TENDON DISORDER [None]
